FAERS Safety Report 15596351 (Version 1)
Quarter: 2018Q4

REPORT INFORMATION
  Report Type: Spontaneous
  Country: NZ (occurrence: NZ)
  Receive Date: 20181107
  Receipt Date: 20181107
  Transmission Date: 20190205
  Serious: Yes (Death, Hospitalization)
  Sender: FDA-Public Use
  Company Number: PHHY2018NZ149123

PATIENT
  Sex: Female

DRUGS (1)
  1. ACLASTA [Suspect]
     Active Substance: ZOLEDRONIC ACID
     Indication: PAIN
     Route: 041

REACTIONS (5)
  - Death [Fatal]
  - Acute kidney injury [Unknown]
  - Malaise [Unknown]
  - Wrong product administered [Unknown]
  - Product use in unapproved indication [Unknown]
